FAERS Safety Report 9051109 (Version 2)
Quarter: 2013Q1

REPORT INFORMATION
  Report Type: Spontaneous
  Country: US (occurrence: US)
  Receive Date: 20130206
  Receipt Date: 20130321
  Transmission Date: 20140127
  Serious: Yes (Other)
  Sender: FDA-Public Use
  Company Number: US-PFIZER INC-2013045986

PATIENT
  Sex: Female

DRUGS (3)
  1. ADVIL [Suspect]
     Indication: ARTHRALGIA
     Dosage: UNK
     Dates: end: 20130203
  2. VITAMIN B12 [Concomitant]
     Dosage: UNK
  3. ASPIRIN [Concomitant]
     Dosage: 81 MG, UNK

REACTIONS (4)
  - Gastric haemorrhage [Unknown]
  - Haematochezia [Unknown]
  - Constipation [Unknown]
  - Faeces discoloured [Unknown]
